FAERS Safety Report 9030440 (Version 2)
Quarter: 2013Q1

REPORT INFORMATION
  Report Type: Report from Study
  Country: CA (occurrence: CA)
  Receive Date: 20130122
  Receipt Date: 20130125
  Transmission Date: 20140127
  Serious: Yes (Other)
  Sender: FDA-Public Use
  Company Number: CA-ROCHE-1128777

PATIENT
  Age: 43 None
  Sex: Female
  Weight: 54.4 kg

DRUGS (5)
  1. ACTEMRA [Suspect]
     Indication: RHEUMATOID ARTHRITIS
     Route: 042
     Dates: start: 20120327
  2. ARAVA [Concomitant]
  3. METHOTREXATE [Concomitant]
  4. FOLIC ACID [Concomitant]
  5. ALEVE [Concomitant]

REACTIONS (7)
  - Dizziness [Recovered/Resolved]
  - Rheumatoid arthritis [Unknown]
  - Sciatica [Unknown]
  - Ligament sprain [Recovering/Resolving]
  - Fall [Unknown]
  - Fibromyalgia [Not Recovered/Not Resolved]
  - Fall [Unknown]
